FAERS Safety Report 16453790 (Version 2)
Quarter: 2019Q2

REPORT INFORMATION
  Report Type: Spontaneous
  Country: IT (occurrence: IT)
  Receive Date: 20190619
  Receipt Date: 20190628
  Transmission Date: 20190711
  Serious: Yes (Death)
  Sender: FDA-Public Use
  Company Number: IT-ASTRAZENECA-2019SE87841

PATIENT
  Age: 70 Year
  Sex: Male

DRUGS (1)
  1. SEROQUEL [Suspect]
     Active Substance: QUETIAPINE FUMARATE
     Indication: INTENTIONAL SELF-INJURY
     Dosage: 2000.0MG ONCE/SINGLE ADMINISTRATION
     Route: 048
     Dates: start: 20190609, end: 20190609

REACTIONS (4)
  - Cardiac arrest [Fatal]
  - Death [Fatal]
  - Somnolence [Fatal]
  - Drug abuse [Fatal]

NARRATIVE: CASE EVENT DATE: 20190609
